FAERS Safety Report 9735210 (Version 1)
Quarter: 2013Q4

REPORT INFORMATION
  Report Type: Spontaneous
  Country: US (occurrence: None)
  Receive Date: 20131205
  Receipt Date: 20131205
  Transmission Date: 20140711
  Serious: Yes (Disabling)
  Sender: FDA-Public Use
  Company Number: None

PATIENT
  Age: 15 Year
  Sex: Male
  Weight: 58.97 kg

DRUGS (1)
  1. CLINDAMYCIN [Suspect]
     Indication: AGGRESSION
     Dosage: 1 PILL
     Route: 048
     Dates: start: 20130819, end: 20130831

REACTIONS (1)
  - Ageusia [None]
